FAERS Safety Report 5659992-5 (Version None)
Quarter: 2008Q1

REPORT INFORMATION
  Report Type: 
  Country: None (occurrence: None)
  Receive Date: 20080306
  Receipt Date: 20080225
  Transmission Date: 20080703
  Serious: Yes (Other)
  Sender: FDA-Public Use
  Company Number: 2008AP000517

PATIENT
  Age: 18 Year
  Sex: Male

DRUGS (3)
  1. FLUTICASONE PROPIONATE [Suspect]
     Indication: SEASONAL ALLERGY
     Dosage: 4 SPR; QD; INH
     Route: 055
     Dates: start: 20080208, end: 20080222
  2. LORATADINE [Concomitant]
  3. MOMETASONE FUROATE [Concomitant]

REACTIONS (1)
  - CONVULSION [None]
